FAERS Safety Report 16034028 (Version 1)
Quarter: 2019Q1

REPORT INFORMATION
  Report Type: Spontaneous
  Country: US (occurrence: US)
  Receive Date: 20190305
  Receipt Date: 20190305
  Transmission Date: 20190418
  Serious: No
  Sender: FDA-Public Use
  Company Number: US-IMPAX LABORATORIES, LLC-2018-IPXL-02593

PATIENT
  Age: 81 Year
  Sex: Male
  Weight: 158 kg

DRUGS (6)
  1. CLARITHROMYCIN. [Concomitant]
     Active Substance: CLARITHROMYCIN
     Indication: HELICOBACTER INFECTION
     Dosage: 1 DF, BID
     Route: 048
     Dates: start: 20180728
  2. AMOXICILLIN. [Concomitant]
     Active Substance: AMOXICILLIN
     Indication: HELICOBACTER INFECTION
     Dosage: 1 DF, BID
     Route: 048
     Dates: start: 20180728
  3. RYTARY [Suspect]
     Active Substance: CARBIDOPA\LEVODOPA
     Dosage: 61.25/245 MG, THREE CAPSULE THREE TIMES A DAY (270 CAPSULES FOR 30 DAYS)
     Route: 048
     Dates: start: 20180725, end: 2018
  4. RYTARY [Suspect]
     Active Substance: CARBIDOPA\LEVODOPA
     Indication: PARKINSON^S DISEASE
     Dosage: 61.25/245MG, ONE CAPSULE THREE TIMES DAILY
     Route: 048
     Dates: start: 20180723, end: 20180725
  5. RYTARY [Suspect]
     Active Substance: CARBIDOPA\LEVODOPA
     Dosage: UNK, DECREASED DOSE
     Route: 065
     Dates: start: 2018
  6. OMEPRAZOLE. [Concomitant]
     Active Substance: OMEPRAZOLE
     Indication: HELICOBACTER INFECTION
     Dosage: 1 DF, BID
     Route: 048
     Dates: start: 20180728

REACTIONS (4)
  - Tremor [Recovering/Resolving]
  - Delusion [Unknown]
  - Product dispensing error [Unknown]
  - Wrong dose [Unknown]

NARRATIVE: CASE EVENT DATE: 2018
